FAERS Safety Report 13957636 (Version 1)
Quarter: 2017Q3

REPORT INFORMATION
  Report Type: Spontaneous
  Country: US (occurrence: US)
  Receive Date: 20170911
  Receipt Date: 20170911
  Transmission Date: 20171128
  Serious: No
  Sender: FDA-Public Use
  Company Number: US-ROCHE-1130878

PATIENT
  Sex: Female

DRUGS (2)
  1. KEFLEX ELIXIR [Concomitant]
  2. RITUXAN [Suspect]
     Active Substance: RITUXIMAB
     Indication: CHRONIC LYMPHOCYTIC LEUKAEMIA
     Route: 065
     Dates: start: 20010726

REACTIONS (4)
  - Pain [Unknown]
  - Contusion [Unknown]
  - Tooth extraction [Unknown]
  - Dizziness [Recovering/Resolving]
